FAERS Safety Report 14965584 (Version 3)
Quarter: 2020Q1

REPORT INFORMATION
  Report Type: Spontaneous
  Country: US (occurrence: US)
  Receive Date: 20180602
  Receipt Date: 20200313
  Transmission Date: 20200409
  Serious: Yes (Hospitalization)
  Sender: FDA-Public Use
  Company Number: US-JNJFOC-20180528545

PATIENT
  Age: 73 Year
  Sex: Male

DRUGS (4)
  1. XARELTO [Suspect]
     Active Substance: RIVAROXABAN
     Indication: THROMBOSIS PROPHYLAXIS
  2. XARELTO [Suspect]
     Active Substance: RIVAROXABAN
     Indication: CEREBROVASCULAR ACCIDENT PROPHYLAXIS
     Route: 048
     Dates: start: 20150126, end: 20150815
  3. XARELTO [Suspect]
     Active Substance: RIVAROXABAN
     Indication: ATRIAL FIBRILLATION
  4. ASPIRIN. [Suspect]
     Active Substance: ASPIRIN

REACTIONS (3)
  - Acute kidney injury [Recovering/Resolving]
  - Gastrointestinal haemorrhage [Unknown]
  - Haemorrhoids [Unknown]

NARRATIVE: CASE EVENT DATE: 201508
